FAERS Safety Report 9697390 (Version 1)
Quarter: 2013Q4

REPORT INFORMATION
  Report Type: Spontaneous
  Country: US (occurrence: None)
  Receive Date: 20131119
  Receipt Date: 20131119
  Transmission Date: 20140711
  Serious: Yes (Hospitalization)
  Sender: FDA-Public Use
  Company Number: None

PATIENT
  Age: 63 Year
  Sex: Female
  Weight: 59.88 kg

DRUGS (4)
  1. BRENTUXIMAB VEDOTIN [Suspect]
     Indication: ANGIOIMMUNOBLASTIC T-CELL LYMPHOMA
     Route: 042
     Dates: start: 20131031
  2. NEURONTIN [Concomitant]
  3. PERCOCET [Concomitant]
  4. KCL [Concomitant]

REACTIONS (2)
  - Pancreatitis [None]
  - Abdominal pain [None]
